FAERS Safety Report 4476903-9 (Version None)
Quarter: 2004Q3

REPORT INFORMATION
  Report Type: 
  Country: None (occurrence: None)
  Receive Date: 20040923
  Receipt Date: 20040615
  Transmission Date: 20050211
  Serious: No
  Sender: FDA-Public Use
  Company Number: USA040670307

PATIENT
  Age: 82 Year
  Sex: Female

DRUGS (13)
  1. FORTEO [Suspect]
     Indication: OSTEOPOROSIS
     Dates: start: 20040609
  2. MULTI-VITAMIN [Concomitant]
  3. VITAMIN E [Concomitant]
  4. B50 (CHLOROPHYLLIN SODIUM COPPER COMPLEX) [Concomitant]
  5. L-LYSINE [Concomitant]
  6. OMEGA - 3 FISH OIL [Concomitant]
  7. COQ10 (UBIDECARENONE) [Concomitant]
  8. CLARITIN [Concomitant]
  9. ASPIRIN [Concomitant]
  10. BENADRYL [Concomitant]
  11. LANOXIN [Concomitant]
  12. TOPROL-XL [Concomitant]
  13. CALCIUM W/MAGNESIUM/VITAMIN D [Concomitant]

REACTIONS (5)
  - DIZZINESS [None]
  - EYELID FUNCTION DISORDER [None]
  - HEADACHE [None]
  - INSOMNIA [None]
  - TENSION [None]
